FAERS Safety Report 8955196 (Version 1)
Quarter: 2012Q4

REPORT INFORMATION
  Report Type: 
  Country: US (occurrence: US)
  Receive Date: 20121207
  Receipt Date: 20121207
  Transmission Date: 20130627
  Serious: Yes (Hospitalization, Other)
  Sender: FDA-Public Use
  Company Number: US-ACTELION-A-US2012-75491

PATIENT
  Age: 73 Year
  Sex: Female

DRUGS (3)
  1. VELETRI [Suspect]
     Indication: PULMONARY ARTERIAL HYPERTENSION
     Dosage: 10 UNK, UNK
     Route: 042
     Dates: start: 20111107
  2. SILDENAFIL [Concomitant]
  3. ASA [Concomitant]

REACTIONS (5)
  - Pneumonia [Unknown]
  - Anaemia [Unknown]
  - Transfusion [Unknown]
  - Lung disorder [Unknown]
  - Haemorrhage [None]
